FAERS Safety Report 10606592 (Version 1)
Quarter: 2014Q4

REPORT INFORMATION
  Report Type: Spontaneous
  Country: GB (occurrence: None)
  Receive Date: 20141121
  Receipt Date: 20141121
  Transmission Date: 20150529
  Serious: Yes (Hospitalization, Other)
  Sender: FDA-Public Use
  Company Number: GB-20140042

PATIENT
  Age: 64 Year
  Sex: Female

DRUGS (12)
  1. LISINOPRIL (LISINOPRIL) (LISINOPRIL) [Concomitant]
     Active Substance: LISINOPRIL
  2. PARACETAMOL (PARACETAMOL) (PARACETAMOL) [Concomitant]
     Active Substance: ACETAMINOPHEN
  3. CLOPIDOGREL [Concomitant]
     Active Substance: CLOPIDOGREL BISULFATE
  4. ALLOPURINOL (ALLOPURINOL) (ALLOPURINOL) [Concomitant]
     Active Substance: ALLOPURINOL
  5. GABAPENTIN (GABAPENTIN) (GABAPENTIN) [Concomitant]
     Active Substance: GABAPENTIN
  6. MODIFIED-RELEASE MORPHINE (MORPHINE) (MORPHINE) [Concomitant]
  7. DULOXETINE (DULOXETINE) (DULOXETINE) [Concomitant]
     Active Substance: DULOXETINE
  8. DOTAREM [Suspect]
     Active Substance: GADOTERATE MEGLUMINE
     Indication: NUCLEAR MAGNETIC RESONANCE IMAGING
     Dosage: 15 ML (15 ML, 1 IN 1 D), INTRAVENOUS (NOT OTHERWISE SPECIFIED)?
     Route: 042
     Dates: start: 20141029, end: 20141029
  9. CEPHALEXIN (CEFALEXIN) CEFALEXIN) [Concomitant]
  10. FUROSEMIDE (FUROSEMIDE) (FUROSEMIDE) [Concomitant]
     Active Substance: FUROSEMIDE
  11. METFORMIN [Concomitant]
     Active Substance: METFORMIN HYDROCHLORIDE
  12. ATORVASTATIN (ATORVASTATIN) (ATORVASTATIN) [Concomitant]
     Active Substance: ATORVASTATIN

REACTIONS (5)
  - Cough [None]
  - Anaphylactic reaction [None]
  - Vomiting [None]
  - Nausea [None]
  - Chest discomfort [None]

NARRATIVE: CASE EVENT DATE: 20141029
